FAERS Safety Report 5488973-X (Version None)
Quarter: 2007Q4

REPORT INFORMATION
  Report Type: 
  Country: None (occurrence: None)
  Receive Date: 20071016
  Receipt Date: 20071002
  Transmission Date: 20080405
  Serious: Yes (Death)
  Sender: FDA-Public Use
  Company Number: 17309

PATIENT
  Age: 74 Year
  Sex: Male

DRUGS (3)
  1. DAUNORUBICIN HCL [Suspect]
     Dosage: 50 MG/M2 DAILY IV
     Route: 042
  2. CYTARABINE [Suspect]
     Indication: CHEMOTHERAPY
     Dosage: 20 MG OTH
     Dates: start: 20070629, end: 20070708
  3. GEMTUZUMAB [Suspect]
     Indication: CHEMOTHERAPY
     Dosage: 3 MG/M2 FREQ IV
     Route: 042
     Dates: start: 20070629, end: 20070708

REACTIONS (2)
  - CHEST DISCOMFORT [None]
  - PNEUMONIA [None]
